FAERS Safety Report 18857138 (Version 5)
Quarter: 2021Q1

REPORT INFORMATION
  Report Type: Report from Study
  Country: DE (occurrence: DE)
  Receive Date: 20210208
  Receipt Date: 20210324
  Transmission Date: 20210420
  Serious: Yes (Death, Hospitalization, Other)
  Sender: FDA-Public Use
  Company Number: DE-BRISTOL-MYERS SQUIBB COMPANY-BMS-2021-009376

PATIENT
  Age: 77 Year
  Sex: Male

DRUGS (17)
  1. METOPROLOL. [Concomitant]
     Active Substance: METOPROLOL
     Indication: CEREBROVASCULAR DISORDER
  2. METFORMIN [Concomitant]
     Active Substance: METFORMIN HYDROCHLORIDE
     Indication: METABOLIC DISORDER
     Dosage: 2000 MILLIGRAM
     Route: 065
  3. NIVOLUMAB [Suspect]
     Active Substance: NIVOLUMAB
     Indication: RENAL CELL CARCINOMA
     Dosage: UNK UNK, Q3WK
     Route: 042
     Dates: start: 20200819, end: 20201111
  4. IPILIMUMAB [Suspect]
     Active Substance: IPILIMUMAB
     Indication: RENAL CELL CARCINOMA
     Dosage: 92.1 MILLIGRAM, Q3WK
     Route: 042
     Dates: start: 20200819, end: 20201111
  5. MOXONIDIN [Concomitant]
     Active Substance: MOXONIDINE
     Indication: CEREBROVASCULAR DISORDER
  6. LERCANIDIPINE [Concomitant]
     Active Substance: LERCANIDIPINE
     Indication: CEREBROVASCULAR DISORDER
  7. NIVOLUMAB [Suspect]
     Active Substance: NIVOLUMAB
     Dosage: 240 MILLIGRAM
     Route: 042
     Dates: end: 20210114
  8. JARDIANCE [Concomitant]
     Active Substance: EMPAGLIFLOZIN
     Indication: METABOLIC DISORDER
     Dosage: 10 MILLIGRAM
     Route: 065
  9. SPIRONOLACTON [Concomitant]
     Active Substance: SPIRONOLACTONE
     Indication: CARDIOVASCULAR DISORDER
     Dosage: 25 MILLIGRAM
     Route: 065
  10. LERCANIDIPINE [Concomitant]
     Active Substance: LERCANIDIPINE
     Indication: CARDIOVASCULAR DISORDER
     Dosage: 20 MILLIGRAM
     Route: 065
  11. SIMVASTATIN. [Concomitant]
     Active Substance: SIMVASTATIN
     Indication: METABOLIC DISORDER
     Dosage: 40 MILLIGRAM
     Route: 065
  12. TORASEMID [Concomitant]
     Active Substance: TORSEMIDE
     Indication: METABOLIC DISORDER
     Dosage: 40 MILLIGRAM
     Route: 065
  13. MOXONIDIN [Concomitant]
     Active Substance: MOXONIDINE
     Indication: CARDIOVASCULAR DISORDER
     Dosage: 0.6 MILLIGRAM
     Route: 065
  14. METOPROLOL. [Concomitant]
     Active Substance: METOPROLOL
     Indication: CARDIOVASCULAR DISORDER
     Dosage: 190 MILLIGRAM
     Route: 065
  15. SPIRONOLACTON [Concomitant]
     Active Substance: SPIRONOLACTONE
     Indication: CEREBROVASCULAR DISORDER
  16. CANDESARTAN. [Concomitant]
     Active Substance: CANDESARTAN
     Indication: CEREBROVASCULAR DISORDER
  17. CANDESARTAN. [Concomitant]
     Active Substance: CANDESARTAN
     Indication: CARDIOVASCULAR DISORDER
     Dosage: 32 MILLIGRAM
     Route: 065

REACTIONS (2)
  - Cardiac failure [Fatal]
  - Renal failure [Fatal]

NARRATIVE: CASE EVENT DATE: 20210128
